FAERS Safety Report 5887877-8 (Version None)
Quarter: 2008Q3

REPORT INFORMATION
  Report Type: 
  Country: None (occurrence: None)
  Receive Date: 20080918
  Receipt Date: 20080908
  Transmission Date: 20090109
  Serious: Yes (Hospitalization)
  Sender: FDA-Public Use
  Company Number: A0628120A

PATIENT
  Age: 7 Year
  Sex: Male
  Weight: 21.8 kg

DRUGS (2)
  1. WELLBUTRIN XL [Suspect]
     Dosage: 150MG AT NIGHT
     Route: 048
  2. METHYLPHENIDATE HCL [Concomitant]
     Indication: ATTENTION DEFICIT/HYPERACTIVITY DISORDER
     Dosage: 54MG PER DAY
     Route: 048

REACTIONS (16)
  - ACCIDENTAL EXPOSURE [None]
  - ACCIDENTAL OVERDOSE [None]
  - AGITATION [None]
  - ANXIETY [None]
  - ATAXIA [None]
  - DISORIENTATION [None]
  - FEELING JITTERY [None]
  - GRAND MAL CONVULSION [None]
  - HALLUCINATION, TACTILE [None]
  - HALLUCINATION, VISUAL [None]
  - POSTICTAL STATE [None]
  - RASH [None]
  - RESTLESSNESS [None]
  - SPEECH DISORDER [None]
  - TACHYCARDIA [None]
  - VOMITING [None]
